FAERS Safety Report 7406456-4 (Version None)
Quarter: 2011Q2

REPORT INFORMATION
  Report Type: 
  Country: None (occurrence: None)
  Receive Date: 20110411
  Receipt Date: 20110401
  Transmission Date: 20111010
  Serious: Yes (Hospitalization, Other)
  Sender: FDA-Public Use
  Company Number: US-ASTRAZENECA-2010SE51469

PATIENT
  Age: 81 Year
  Sex: Male

DRUGS (4)
  1. FLOMAX [Concomitant]
  2. PLAVIX [Concomitant]
     Dosage: 75 MG
  3. LOTUS [Concomitant]
  4. NEXIUM [Suspect]
     Route: 048

REACTIONS (7)
  - DIABETES MELLITUS [None]
  - INTENTIONAL DRUG MISUSE [None]
  - PROSTATE CANCER [None]
  - NOCTURIA [None]
  - MYOCARDIAL INFARCTION [None]
  - DYSPEPSIA [None]
  - DRUG DOSE OMISSION [None]
